FAERS Safety Report 20304112 (Version 1)
Quarter: 2022Q1

REPORT INFORMATION
  Report Type: Spontaneous
  Country: DE (occurrence: DE)
  Receive Date: 20220106
  Receipt Date: 20220106
  Transmission Date: 20220423
  Serious: Yes (Hospitalization)
  Sender: FDA-Public Use
  Company Number: DE-ADRED-07378-01

PATIENT
  Age: 63 Year
  Sex: Male

DRUGS (10)
  1. ESCITALOPRAM [Suspect]
     Active Substance: ESCITALOPRAM OXALATE
     Indication: Product used for unknown indication
     Dosage: UNK (1-0-0-0, TABLETTEN)
     Route: 048
  2. CANDESARTAN CILEXETIL\HYDROCHLOROTHIAZIDE [Suspect]
     Active Substance: CANDESARTAN CILEXETIL\HYDROCHLOROTHIAZIDE
     Indication: Product used for unknown indication
     Dosage: UNK (32/5 MG, 1-0-0-0, TABLETTEN)
     Route: 048
  3. TAMSULOSIN [Concomitant]
     Active Substance: TAMSULOSIN
     Dosage: 0.4 MILLIGRAM (0.4 MG, 0-1-0-0, TABLETTEN)
     Route: 048
  4. VALPROIC ACID [Concomitant]
     Active Substance: VALPROIC ACID
     Dosage: 30 MILLIGRAM (30 MG, 2-1-0-0, RETARD-TABLETTEN)
     Route: 048
  5. NALOXONE HYDROCHLORIDE\TILIDINE HYDROCHLORIDE [Concomitant]
     Active Substance: NALOXONE HYDROCHLORIDE\TILIDINE HYDROCHLORIDE
     Dosage: UNK (100/8 MG, 1-0-1-0, RETARD-TABLETTEN)
     Route: 048
  6. ASPIRIN [Concomitant]
     Active Substance: ASPIRIN
     Dosage: 100 MILLIGRAM (100 MG, 1-0-0-0, TABLETTEN)
     Route: 048
  7. OLANZAPINE [Concomitant]
     Active Substance: OLANZAPINE
     Dosage: 5 MILLIGRAM (5 MG, 0-0-1-0, TABLETTEN)
     Route: 048
  8. METAMIZOL [Concomitant]
     Active Substance: METAMIZOLE SODIUM
     Dosage: UNK (30-30-30-0, TROPFEN)
     Route: 048
  9. LEVOTHYROXINUM NATRICUM [Concomitant]
     Dosage: 50 MICROGRAM (50 ?G, 1-0-0-0, TABLETTEN)
     Route: 048
  10. LERCANIDIPINE [Concomitant]
     Active Substance: LERCANIDIPINE
     Dosage: 10 MILLIGRAM (10 MG, 0-0-1-0, TABLETTEN)
     Route: 048

REACTIONS (5)
  - Psychomotor retardation [Unknown]
  - Inappropriate antidiuretic hormone secretion [Unknown]
  - Confusional state [Unknown]
  - Dizziness [Unknown]
  - Hyponatraemia [Unknown]
